FAERS Safety Report 6849137-8 (Version None)
Quarter: 2010Q3

REPORT INFORMATION
  Report Type: 
  Country: None (occurrence: None)
  Receive Date: 20100716
  Receipt Date: 20100706
  Transmission Date: 20110219
  Serious: Yes (Hospitalization, Other)
  Sender: FDA-Public Use
  Company Number: PHEH2009US02019

PATIENT
  Sex: Male

DRUGS (16)
  1. ZOMETA [Suspect]
     Indication: NEOPLASM MALIGNANT
     Dosage: UNK
     Dates: start: 20030301, end: 20080101
  2. INSULIN [Concomitant]
  3. GLIPIZIDE [Concomitant]
  4. ACTOS [Concomitant]
  5. FENTANYL [Concomitant]
  6. TRAZODONE HYDROCHLORIDE [Concomitant]
  7. NORVASC [Concomitant]
  8. NEXIUM [Concomitant]
  9. GLUCOTROL [Concomitant]
  10. DILAUDID [Concomitant]
  11. SYNTHROID [Concomitant]
  12. BENICAR [Concomitant]
  13. TESTIM [Concomitant]
  14. ZOLOFT [Concomitant]
  15. LEXAPRO [Concomitant]
  16. SUTENT [Concomitant]
     Dosage: UNK
     Dates: end: 20080301

REACTIONS (40)
  - ABDOMINAL PAIN [None]
  - AGITATION [None]
  - ASTHENIA [None]
  - BLOOD GLUCOSE ABNORMAL [None]
  - BLOOD GLUCOSE INCREASED [None]
  - DEBRIDEMENT [None]
  - DEFORMITY [None]
  - DEHYDRATION [None]
  - DEPRESSED MOOD [None]
  - DIARRHOEA [None]
  - DISCOMFORT [None]
  - DYSPHAGIA [None]
  - FATIGUE [None]
  - HEADACHE [None]
  - INSOMNIA [None]
  - IRRITABILITY [None]
  - LUNG NEOPLASM [None]
  - LYMPHADENECTOMY [None]
  - LYMPHADENOPATHY [None]
  - LYMPHADENOPATHY MEDIASTINAL [None]
  - MALIGNANT NEOPLASM PROGRESSION [None]
  - METASTASES TO ADRENALS [None]
  - METASTASES TO BONE [None]
  - METASTASES TO LUNG [None]
  - METASTASES TO NECK [None]
  - NAUSEA [None]
  - NECK PAIN [None]
  - OROANTRAL FISTULA [None]
  - OSTEOARTHRITIS [None]
  - OSTEONECROSIS OF JAW [None]
  - PAIN [None]
  - PLEURAL EFFUSION [None]
  - POLLAKIURIA [None]
  - SINUS OPERATION [None]
  - SINUSITIS [None]
  - SMALL INTESTINAL OBSTRUCTION [None]
  - SPINAL OSTEOARTHRITIS [None]
  - SUICIDAL IDEATION [None]
  - TOOTH EXTRACTION [None]
  - VOMITING [None]
